FAERS Safety Report 9917027 (Version 6)
Quarter: 2014Q2

REPORT INFORMATION
  Report Type: Report from Study
  Country: US (occurrence: US)
  Receive Date: 20140221
  Receipt Date: 20140523
  Transmission Date: 20141212
  Serious: Yes (Hospitalization)
  Sender: FDA-Public Use
  Company Number: US-GLAXOSMITHKLINE-A1061765A

PATIENT
  Age: 57 Year
  Sex: Female
  Weight: 84.8 kg

DRUGS (5)
  1. TRAMETINIB [Suspect]
     Indication: NEOPLASM
     Dosage: 1.5MG PER DAY
     Route: 048
     Dates: start: 20140124
  2. GSK2141795 [Suspect]
     Indication: NEOPLASM
     Dosage: 50MG PER DAY
     Route: 048
     Dates: start: 20140124
  3. LASIX [Concomitant]
     Indication: HYPOVOLAEMIA
     Dosage: 20MG PER DAY
     Route: 048
     Dates: start: 20140223, end: 20140224
  4. TUMS [Concomitant]
  5. TYLENOL [Concomitant]

REACTIONS (1)
  - Colitis [Recovered/Resolved]
